FAERS Safety Report 7501435-0 (Version None)
Quarter: 2011Q2

REPORT INFORMATION
  Report Type: 
  Country: None (occurrence: None)
  Receive Date: 20110524
  Receipt Date: 20110513
  Transmission Date: 20111010
  Serious: Yes (Hospitalization)
  Sender: FDA-Public Use
  Company Number: FR-BAXTER-2011BH016469

PATIENT
  Age: 60 Year
  Sex: Female

DRUGS (3)
  1. GAMMAGARD LIQUID [Suspect]
     Indication: MULTIFOCAL MOTOR NEUROPATHY
     Route: 042
     Dates: start: 20110404, end: 20110405
  2. METRONIDAZOLE [Suspect]
     Indication: COLITIS ULCERATIVE
     Route: 065
  3. GAMMAGARD LIQUID [Suspect]
     Indication: OFF LABEL USE
     Route: 042
     Dates: start: 20110404, end: 20110405

REACTIONS (4)
  - NEUTROPENIA [None]
  - ABDOMINAL PAIN [None]
  - LEUKOPENIA [None]
  - GASTROINTESTINAL HYPOMOTILITY [None]
